FAERS Safety Report 17323976 (Version 10)
Quarter: 2020Q4

REPORT INFORMATION
  Report Type: Report from Study
  Country: BR (occurrence: BR)
  Receive Date: 20200127
  Receipt Date: 20201026
  Transmission Date: 20210113
  Serious: Yes (Hospitalization)
  Sender: FDA-Public Use
  Company Number: BR-ROCHE-2522721

PATIENT
  Age: 64 Year
  Sex: Female
  Weight: 64.8 kg

DRUGS (11)
  1. ATEZOLIZUMAB. [Suspect]
     Active Substance: ATEZOLIZUMAB
     Indication: BREAST CANCER
     Dosage: ON 02/JAN/2020, SHE RECEIVED MOST RECENT DOSE OF ATEZOLIZUMAB (840 MG) PRIOR TO AE/SAE ONSET AT 14:0
     Route: 042
  2. CEFAZOLIN [Concomitant]
     Active Substance: CEFAZOLIN
     Route: 042
     Dates: start: 20200111, end: 20200111
  3. IPATASERTIB. [Suspect]
     Active Substance: IPATASERTIB
     Indication: BREAST CANCER
     Dosage: ON 08/JAN/2020, SHE RECEIVED MOST RECENT DOSE (400MG) OF IPATASERTIB PRIOR TO EVENT ONSET.
     Route: 048
     Dates: start: 20191203
  4. PREDNISONE. [Concomitant]
     Active Substance: PREDNISONE
     Route: 048
     Dates: start: 20191217, end: 20191221
  5. LOPERAMIDE [Suspect]
     Active Substance: LOPERAMIDE
     Indication: BREAST CANCER
     Dosage: SHE RECEIVED MOST RECENT DOSE OF LOPERAMIDE (2 MG) ON 19/DEC/2019, PRIOR TO AE ONSET.
     Route: 048
     Dates: start: 20191204
  6. ONDANSETRON [Concomitant]
     Active Substance: ONDANSETRON
     Indication: NAUSEA
     Route: 060
     Dates: start: 20191208, end: 20191215
  7. METRONIDAZOLE. [Concomitant]
     Active Substance: METRONIDAZOLE
     Route: 048
     Dates: start: 20200116, end: 20200130
  8. POLARAMINE [Concomitant]
     Active Substance: DEXCHLORPHENIRAMINE MALEATE
     Route: 048
     Dates: start: 20191203, end: 20200102
  9. METRONIDAZOLE. [Concomitant]
     Active Substance: METRONIDAZOLE
     Route: 042
     Dates: start: 20200111, end: 20200111
  10. PACLITAXEL. [Suspect]
     Active Substance: PACLITAXEL
     Indication: BREAST CANCER
     Dosage: ON 02/JAN/2020, SHE RECEIVED MOST RECENT DOSE OF PACLITAXEL (137.6 MG/M2) PRIOR TO AE/SAE ONSET AT 1
     Route: 042
     Dates: start: 20191203
  11. DEXAMETASONE [Concomitant]
     Active Substance: DEXAMETHASONE
     Route: 042
     Dates: start: 20191203, end: 20200101

REACTIONS (1)
  - Large intestine perforation [Recovered/Resolved]

NARRATIVE: CASE EVENT DATE: 20200111
